FAERS Safety Report 23853834 (Version 1)
Quarter: 2024Q2

REPORT INFORMATION
  Report Type: Spontaneous
  Country: CN (occurrence: CN)
  Receive Date: 20240514
  Receipt Date: 20240514
  Transmission Date: 20240716
  Serious: Yes (Hospitalization, Other)
  Sender: FDA-Public Use
  Company Number: CN-009507513-2405CHN003354

PATIENT
  Age: 86 Year
  Sex: Male
  Weight: 58 kg

DRUGS (2)
  1. KEYTRUDA [Suspect]
     Active Substance: PEMBROLIZUMAB
     Indication: Malignant middle ear neoplasm
     Dosage: 200 MILLIGRAM, ONCE
     Route: 041
     Dates: start: 20240312, end: 20240312
  2. SODIUM CHLORIDE [Concomitant]
     Active Substance: SODIUM CHLORIDE
     Indication: Medication dilution
     Dosage: 100 MILLIGRAM, ONCE, ROUTE:  IVGTT
     Route: 041
     Dates: start: 20240312, end: 20240312

REACTIONS (5)
  - Rash erythematous [Unknown]
  - Skin exfoliation [Unknown]
  - Infection [Unknown]
  - Scab [Unknown]
  - Product use in unapproved indication [Unknown]

NARRATIVE: CASE EVENT DATE: 20240312
